FAERS Safety Report 4955063-1 (Version None)
Quarter: 2006Q1

REPORT INFORMATION
  Report Type: 
  Country: None (occurrence: None)
  Receive Date: 20060322
  Receipt Date: 20060309
  Transmission Date: 20060701
  Serious: Yes (Other)
  Sender: FDA-Public Use
  Company Number: US200602001011

PATIENT
  Age: 66 Year
  Sex: Female
  Weight: 68.1 kg

DRUGS (4)
  1. ALIMTA [Suspect]
     Indication: NON-SMALL CELL LUNG CANCER
     Dosage: 890 MG
     Dates: start: 20060118, end: 20060118
  2. VITAMIN B12 [Concomitant]
  3. FOLIC ACID [Concomitant]
  4. CARBOPLATIN [Concomitant]

REACTIONS (1)
  - THROMBOCYTOPENIA [None]
